FAERS Safety Report 6618505-1 (Version None)
Quarter: 2010Q1

REPORT INFORMATION
  Report Type: 
  Country: None (occurrence: None)
  Receive Date: 20100308
  Receipt Date: 20100301
  Transmission Date: 20100710
  Serious: Yes (Other)
  Sender: FDA-Public Use
  Company Number: BR-ELI_LILLY_AND_COMPANY-BR201003000448

PATIENT
  Sex: Female

DRUGS (8)
  1. HUMULIN R [Suspect]
     Indication: TYPE 2 DIABETES MELLITUS
     Dosage: UNK, OTHER
     Route: 058
  2. CARBAMAZEPINA [Concomitant]
     Dosage: 400 MG, 2/D
     Route: 065
  3. DEPAKOTE ER [Concomitant]
     Dosage: 500 MG, DAILY (1/D)
     Route: 065
  4. SINVASTATINA [Concomitant]
     Dosage: 40 MG, DAILY (1/D)
     Route: 065
  5. DILTIAZEM HCL [Concomitant]
     Dosage: 40 MG, DAILY (1/D)
     Route: 065
  6. CALCIUM + VITAMIN D [Concomitant]
     Dosage: UNK, DAILY (1/D)
     Route: 065
  7. MACRODANTINA [Concomitant]
     Dosage: 100 MG, DAILY (1/D)
     Route: 065
  8. HUMULIN N [Concomitant]
     Dosage: UNK, UNKNOWN
     Route: 065

REACTIONS (2)
  - HYPOGLYCAEMIC COMA [None]
  - WRONG DRUG ADMINISTERED [None]
